FAERS Safety Report 12154644 (Version 1)
Quarter: 2016Q1

REPORT INFORMATION
  Report Type: Spontaneous
  Country: US (occurrence: None)
  Receive Date: 20160304
  Receipt Date: 20160304
  Transmission Date: 20160526
  Serious: No
  Sender: FDA-Public Use
  Company Number: None

PATIENT
  Age: 50 Year
  Sex: Female
  Weight: 58.97 kg

DRUGS (4)
  1. IBUPROFEN. [Concomitant]
     Active Substance: IBUPROFEN
  2. TYLENOL [Concomitant]
     Active Substance: ACETAMINOPHEN
  3. CHLOROHEXIDINE [Suspect]
     Active Substance: CHLORHEXIDINE
     Indication: NONINFECTIVE GINGIVITIS
  4. ALEVE [Concomitant]
     Active Substance: NAPROXEN SODIUM

REACTIONS (9)
  - Pain [None]
  - Tremor [None]
  - Communication disorder [None]
  - Hypertension [None]
  - Dysgeusia [None]
  - Vomiting [None]
  - Mental impairment [None]
  - Crying [None]
  - Headache [None]

NARRATIVE: CASE EVENT DATE: 20160302
